FAERS Safety Report 9495565 (Version 3)
Quarter: 2014Q3

REPORT INFORMATION
  Report Type: Spontaneous
  Country: US (occurrence: US)
  Receive Date: 20130903
  Receipt Date: 20140801
  Transmission Date: 20150326
  Serious: Yes (Hospitalization)
  Sender: FDA-Public Use
  Company Number: US-BAYER-2013-105525

PATIENT
  Age: 27 Year
  Sex: Female
  Weight: 58.96 kg

DRUGS (1)
  1. MIRENA [Suspect]
     Active Substance: LEVONORGESTREL
     Indication: CONTRACEPTION
     Dosage: 20 MCG/24HR, CONT
     Route: 015
     Dates: start: 20100706, end: 20120207

REACTIONS (13)
  - Medical device pain [None]
  - Psychological trauma [None]
  - Dyspareunia [None]
  - Injury [None]
  - Uterine perforation [None]
  - Device difficult to use [None]
  - Anxiety [None]
  - Device issue [None]
  - Depression [None]
  - Emotional distress [None]
  - Pelvic pain [None]
  - Device dislocation [None]
  - Infection [None]

NARRATIVE: CASE EVENT DATE: 201012
